FAERS Safety Report 9530194 (Version 3)
Quarter: 2013Q3

REPORT INFORMATION
  Report Type: Report from Study
  Country: US (occurrence: US)
  Receive Date: 20130917
  Receipt Date: 20130920
  Transmission Date: 20140515
  Serious: Yes (Hospitalization)
  Sender: FDA-Public Use
  Company Number: US-BAXTER-2013BAX034274

PATIENT
  Age: 63 Year
  Sex: Female
  Weight: 74.5 kg

DRUGS (1)
  1. ARALAST NP [Suspect]
     Indication: ALPHA-1 ANTI-TRYPSIN DEFICIENCY
     Dosage: X5 VIALS
     Route: 042

REACTIONS (2)
  - Pneumonia [Recovered/Resolved]
  - Pleuritic pain [Recovered/Resolved]
